FAERS Safety Report 18612672 (Version 1)
Quarter: 2020Q4

REPORT INFORMATION
  Report Type: Spontaneous
  Country: DE (occurrence: DE)
  Receive Date: 20201214
  Receipt Date: 20201214
  Transmission Date: 20210114
  Serious: Yes (Hospitalization)
  Sender: FDA-Public Use
  Company Number: DE-ANIPHARMA-2020-DE-000310

PATIENT
  Age: 86 Year
  Sex: Female

DRUGS (9)
  1. CANDESARTAN CILEXETIL AND HYDROCHLOROTHIAZIDE [Suspect]
     Active Substance: CANDESARTAN CILEXETIL\HYDROCHLOROTHIAZIDE
     Indication: PRODUCT USED FOR UNKNOWN INDICATION
     Dosage: 16/12.5 MILLIGRAM, EVERY DAY
     Route: 048
  2. GLYCEROLTRINITRAT [Concomitant]
     Active Substance: NITROGLYCERIN
     Dosage: .4 MG  UNK
     Route: 065
  3. LEVODOPA-CARBIDOPA [Concomitant]
     Active Substance: CARBIDOPA\LEVODOPA
     Dosage: 25/100 MILLIGRAM, EVEERY DAY
     Route: 048
  4. APIXABAN [Concomitant]
     Active Substance: APIXABAN
     Dosage: 5 MG BID
     Route: 048
  5. ATORVASTATIN [Concomitant]
     Active Substance: ATORVASTATIN
     Dosage: 10 MG QD
     Route: 048
  6. CHININ [Concomitant]
     Active Substance: QUININE HYDROCHLORIDE
     Dosage: 165.74 MG QD
     Route: 048
  7. PANTOPRAZOL [Concomitant]
     Active Substance: PANTOPRAZOLE SODIUM
     Dosage: 20 MG QD
     Route: 048
  8. DICLOFENAC [Concomitant]
     Active Substance: DICLOFENAC
     Dosage: 75 MG BID
     Route: 048
  9. PREGABALIN. [Suspect]
     Active Substance: PREGABALIN
     Dosage: 150 MG QD
     Route: 048

REACTIONS (4)
  - Abdominal pain [Unknown]
  - Pain [Unknown]
  - Weight decreased [None]
  - Abdominal pain upper [Unknown]
